FAERS Safety Report 21400238 (Version 1)
Quarter: 2022Q3

REPORT INFORMATION
  Report Type: Spontaneous
  Country: US (occurrence: None)
  Receive Date: 20220929
  Receipt Date: 20220929
  Transmission Date: 20221026
  Serious: Yes (Hospitalization)
  Sender: FDA-Public Use
  Company Number: None

PATIENT
  Age: 57 Year
  Sex: Female
  Weight: 58.97 kg

DRUGS (1)
  1. HERBALS [Suspect]
     Active Substance: HERBALS
     Indication: Nutritional supplementation
     Route: 048
     Dates: start: 20220916, end: 20220916

REACTIONS (15)
  - Malaise [None]
  - Tremor [None]
  - Chills [None]
  - Peripheral coldness [None]
  - Diarrhoea [None]
  - Body temperature increased [None]
  - Heart rate increased [None]
  - Blood pressure decreased [None]
  - White blood cell count increased [None]
  - Computerised tomogram abdomen abnormal [None]
  - Gastrointestinal disorder [None]
  - Sleep disorder [None]
  - Culture stool positive [None]
  - Campylobacter infection [None]
  - Food poisoning [None]

NARRATIVE: CASE EVENT DATE: 20220918
